FAERS Safety Report 4414058-7 (Version None)
Quarter: 2004Q3

REPORT INFORMATION
  Report Type: 
  Country: None (occurrence: None)
  Receive Date: 20040803
  Receipt Date: 20040728
  Transmission Date: 20050211
  Serious: Yes (Hospitalization)
  Sender: FDA-Public Use
  Company Number: FI-MERCK-0407FIN00051

PATIENT
  Age: 58 Year
  Sex: Male

DRUGS (2)
  1. MEVACOR [Suspect]
     Indication: HYPERCHOLESTEROLAEMIA
     Route: 048
     Dates: start: 20031001, end: 20040525
  2. PRASTERONE [Concomitant]
     Route: 048
     Dates: start: 20021101, end: 20040401

REACTIONS (2)
  - HEPATITIS CHOLESTATIC [None]
  - REFLUX OESOPHAGITIS [None]
